FAERS Safety Report 7998470 (Version 2)
Quarter: 2013Q1

REPORT INFORMATION
  Report Type: Report from Study
  Country: JP (occurrence: JP)
  Receive Date: 20110418
  Receipt Date: 20130219
  Transmission Date: 20140127
  Serious: Yes (Death, Other)
  Sender: FDA-Public Use
  Company Number: PHHY2011JP29399

PATIENT
  Age: 81 Year
  Sex: Male

DRUGS (12)
  1. AFINITOR [Suspect]
     Indication: METASTATIC RENAL CELL CARCINOMA
     Dosage: 5 MG, DAILY
     Route: 048
     Dates: start: 20101227, end: 20110710
  2. FERROMIA [Suspect]
     Dosage: 50 MG
     Route: 048
     Dates: start: 20101227
  3. FERROMIA [Suspect]
     Dosage: UNK
     Dates: start: 20110104, end: 20110125
  4. SUNITINIB MALATE [Concomitant]
     Indication: METASTATIC RENAL CELL CARCINOMA
     Dosage: 50 MG, UNK
     Route: 048
     Dates: start: 20090826, end: 20100228
  5. SORAFENIB TOSILATE [Concomitant]
     Indication: METASTATIC RENAL CELL CARCINOMA
     Dosage: 400 MG, UNK
     Route: 048
     Dates: start: 20100301, end: 20101130
  6. UNISIA [Concomitant]
     Dosage: 1 DF, UNK
     Route: 048
     Dates: start: 20101227
  7. RESTAMIN [Concomitant]
     Dosage: 30 MG,
     Route: 048
     Dates: start: 20101227
  8. RESTAMIN [Concomitant]
     Dosage: 10 MG,
     Route: 048
  9. RYTHMODAN [Concomitant]
     Dosage: 150 MG, UNK
     Route: 048
     Dates: start: 20101227
  10. URIEF [Concomitant]
     Dosage: 8 MG, UNK
     Route: 048
     Dates: start: 20101227
  11. TAKEPRON [Concomitant]
     Dosage: 15 MG, UNK
     Route: 048
     Dates: start: 20101227
  12. ALLELOCK [Concomitant]
     Dosage: 10 MG, UNK
     Route: 048
     Dates: start: 20101227

REACTIONS (5)
  - Death [Fatal]
  - Blood glucose increased [Not Recovered/Not Resolved]
  - Gamma-glutamyltransferase increased [Not Recovered/Not Resolved]
  - Renal cell carcinoma [Unknown]
  - Malignant neoplasm progression [Unknown]
